FAERS Safety Report 6230708-7 (Version None)
Quarter: 2009Q2

REPORT INFORMATION
  Report Type: 
  Country: None (occurrence: None)
  Receive Date: 20090616
  Receipt Date: 20090608
  Transmission Date: 20091009
  Serious: Yes (Other)
  Sender: FDA-Public Use
  Company Number: IN-BRISTOL-MYERS SQUIBB COMPANY-14653935

PATIENT
  Age: 50 Year
  Sex: Male

DRUGS (1)
  1. GATIFLOXACIN [Suspect]
     Indication: RENAL FAILURE
     Route: 042

REACTIONS (3)
  - RENAL FAILURE [None]
  - RHABDOMYOLYSIS [None]
  - THROMBOCYTOPENIA [None]
